FAERS Safety Report 19505292 (Version 3)
Quarter: 2021Q3

REPORT INFORMATION
  Report Type: Report from Study
  Country: None (occurrence: CH)
  Receive Date: 20210708
  Receipt Date: 20210714
  Transmission Date: 20211014
  Serious: Yes (Death, Hospitalization, Other)
  Sender: FDA-Public Use
  Company Number: CH-ABBVIE-21K-151-3978563-00

PATIENT
  Age: 75 Year
  Sex: Male
  Weight: 59 kg

DRUGS (5)
  1. DUODOPA [Suspect]
     Active Substance: CARBIDOPA\LEVODOPA
     Dosage: MD: 8.0 ML, CRD: 3.2 ML/H, CRN: 0.0 ML/H, ED: 2.0 ML?16H THERAPY
     Route: 050
     Dates: start: 20210212, end: 20210301
  2. DUODOPA [Suspect]
     Active Substance: CARBIDOPA\LEVODOPA
     Dosage: MD: 8.0 ML, CRD: 3.3 ML/H, CRN: 0.0 ML/H, ED: 2.0 ML?16H THERAPY
     Route: 050
     Dates: start: 20210301, end: 20210319
  3. DUODOPA [Suspect]
     Active Substance: CARBIDOPA\LEVODOPA
     Dosage: MD: 8.0 ML, CRD: 3.4 ML/H, CRN: 2.0 ML/H, ED: 2.0 ML?16H THERAPY
     Route: 050
     Dates: start: 20210319, end: 20210630
  4. DUODOPA [Suspect]
     Active Substance: CARBIDOPA\LEVODOPA
     Dosage: MD: 5.0 ML, CRD: 3.4 ML/H, CRN: 2.0 ML/H, ED: 2.0 ML,1 CASSETTE PER DAY
     Route: 050
     Dates: start: 20210630, end: 20210706
  5. DUODOPA [Suspect]
     Active Substance: CARBIDOPA\LEVODOPA
     Indication: PARKINSON^S DISEASE
     Dosage: MD: 4.5 ML, CRD: 3.0 ML/H, CRN: 0.0 ML/H, ED: 1 ML?16H THERAPY
     Route: 050
     Dates: start: 20210209, end: 20210212

REACTIONS (8)
  - Device leakage [Unknown]
  - Respiratory disorder [Not Recovered/Not Resolved]
  - Death [Fatal]
  - Amyotrophic lateral sclerosis [Unknown]
  - Device dislocation [Recovered/Resolved]
  - Oxygen saturation decreased [Unknown]
  - General physical health deterioration [Not Recovered/Not Resolved]
  - Device issue [Recovered/Resolved]

NARRATIVE: CASE EVENT DATE: 2021
